FAERS Safety Report 13363728 (Version 2)
Quarter: 2017Q2

REPORT INFORMATION
  Report Type: Report from Study
  Country: US (occurrence: US)
  Receive Date: 20170323
  Receipt Date: 20170414
  Transmission Date: 20170830
  Serious: Yes (Hospitalization, Other)
  Sender: FDA-Public Use
  Company Number: US-JAZZ-2017-US-003326

PATIENT
  Age: 50 Year
  Sex: Male

DRUGS (4)
  1. ZYPREXA [Concomitant]
     Active Substance: OLANZAPINE
  2. HALDOL [Concomitant]
     Active Substance: HALOPERIDOL
  3. FAZACLO [Suspect]
     Active Substance: CLOZAPINE
     Indication: SCHIZOAFFECTIVE DISORDER
     Dosage: UNK MG, QD
     Route: 048
     Dates: start: 20170203, end: 20170219
  4. DEPAKOTE [Concomitant]
     Active Substance: DIVALPROEX SODIUM

REACTIONS (1)
  - Myocarditis [Recovered/Resolved]

NARRATIVE: CASE EVENT DATE: 20170219
